FAERS Safety Report 9702789 (Version 1)
Quarter: 2013Q4

REPORT INFORMATION
  Report Type: Spontaneous
  Country: US (occurrence: US)
  Receive Date: 20131121
  Receipt Date: 20131121
  Transmission Date: 20140711
  Serious: Yes (Hospitalization)
  Sender: FDA-Public Use
  Company Number: US-GLAXOSMITHKLINE-A1050494A

PATIENT
  Age: 72 Year
  Sex: Female

DRUGS (9)
  1. ADVAIR [Suspect]
     Indication: RESPIRATORY DISORDER
     Dosage: 1PUFF TWICE PER DAY
     Route: 055
  2. SPIRIVA [Concomitant]
  3. GABAPENTIN [Concomitant]
  4. FOLIC ACID [Concomitant]
  5. DEXAMETHASONE [Concomitant]
  6. LOMOTIL [Concomitant]
  7. XANAX [Concomitant]
  8. ZOFRAN [Concomitant]
  9. CONCURRENT MEDICATIONS [Concomitant]

REACTIONS (8)
  - Lung neoplasm malignant [Unknown]
  - Pneumonectomy [Unknown]
  - Lung operation [Unknown]
  - Dyspnoea [Unknown]
  - Drug administration error [Unknown]
  - Memory impairment [Unknown]
  - Dyspnoea exertional [Unknown]
  - Chronic obstructive pulmonary disease [Unknown]
